FAERS Safety Report 10081251 (Version 1)
Quarter: 2014Q2

REPORT INFORMATION
  Report Type: Spontaneous
  Country: US (occurrence: None)
  Receive Date: 20140415
  Receipt Date: 20140415
  Transmission Date: 20141212
  Serious: Yes (Other)
  Sender: FDA-Public Use
  Company Number: None

PATIENT
  Age: 57 Year
  Sex: Female
  Weight: 108.86 kg

DRUGS (1)
  1. METRONIDAZOL [Suspect]
     Indication: DIVERTICULITIS
     Dosage: 500MG TAB 2X A DAY ORAL
     Route: 048
     Dates: start: 20140214

REACTIONS (6)
  - Headache [None]
  - Dizziness [None]
  - Musculoskeletal stiffness [None]
  - Abdominal pain upper [None]
  - Vision blurred [None]
  - Chest discomfort [None]
